FAERS Safety Report 13480966 (Version 2)
Quarter: 2017Q4

REPORT INFORMATION
  Report Type: Spontaneous
  Country: JP (occurrence: JP)
  Receive Date: 20170425
  Receipt Date: 20171227
  Transmission Date: 20180320
  Serious: Yes (Life-Threatening, Hospitalization, Other)
  Sender: FDA-Public Use
  Company Number: JP-BAUSCH-BL-2017-010850

PATIENT
  Age: 64 Year
  Sex: Male

DRUGS (2)
  1. PREDNISOLONE. [Suspect]
     Active Substance: PREDNISOLONE
     Indication: IMMUNE-MEDIATED NECROTISING MYOPATHY
     Dosage: DAILY, DOSE REDUCED
     Route: 048
  2. METHOTREXATE. [Suspect]
     Active Substance: METHOTREXATE
     Indication: IMMUNE-MEDIATED NECROTISING MYOPATHY
     Dosage: WEEKLY
     Route: 065

REACTIONS (4)
  - Chronic myeloid leukaemia [Unknown]
  - Muscular weakness [Unknown]
  - Diabetes mellitus [Unknown]
  - Dysphagia [Unknown]
